FAERS Safety Report 8960491 (Version 1)
Quarter: 2012Q4

REPORT INFORMATION
  Report Type: Spontaneous
  Country: IT (occurrence: None)
  Receive Date: 20121203
  Receipt Date: 20121203
  Transmission Date: 20130627
  Serious: Yes (Other)
  Sender: FDA-Public Use
  Company Number: DSM-2012-01282

PATIENT
  Age: 84 Year
  Sex: Female

DRUGS (7)
  1. OLPRESS (OLMESARTAN MEDOXOMIL) (TABLET) (OLMESARTAN MEDOXOMIL) [Suspect]
     Indication: DRUG USE FOR UNKNOWN INDICATION
     Route: 048
     Dates: start: 20110910
  2. NORVASC [Concomitant]
     Indication: DRUG USE FOR UNKNOWN INDICATION
     Route: 048
     Dates: start: 20110910
  3. LASIX (FUROSEMIDE) (FUROSEMIDE) [Suspect]
     Dosage: (25 mg, 2 in 1 D)
     Route: 048
     Dates: start: 20110910, end: 20120909
  4. LASIX (FUROSEMIDE) (FUROSEMIDE) [Suspect]
     Dosage: (25 mg, 2 in 1 D)
     Route: 048
     Dates: start: 201209
  5. ALLOPURINOLO (ALLOPURINOL) (300 MILLIGRAM) (ALLOPURINOL) [Concomitant]
  6. COUMADIN (WARFARIN SODIUM) (5 MILLIGRAM) (WARFARIN SODIUM) [Concomitant]
  7. BI EUGLUCON (PHENFORMIN HYDROCHLORIDE, GLIBENCLAMIDE) (PHENFORMIN HYDROCHLORIDE, GLIBENCLAMIDE) [Concomitant]

REACTIONS (1)
  - Syncope [None]
